FAERS Safety Report 17149541 (Version 1)
Quarter: 2019Q4

REPORT INFORMATION
  Report Type: Spontaneous
  Country: FR (occurrence: FR)
  Receive Date: 20191213
  Receipt Date: 20191213
  Transmission Date: 20200122
  Serious: Yes (Hospitalization)
  Sender: FDA-Public Use
  Company Number: FR-TEVA-2019-FR-1149057

PATIENT
  Age: 71 Year
  Sex: Male

DRUGS (5)
  1. KETOPROFENE [Suspect]
     Active Substance: KETOPROFEN
     Indication: LIGAMENT SPRAIN
     Dosage: UNSPECIFIED
     Route: 048
     Dates: start: 20190921, end: 20190925
  2. SIFROL 0,52 MG, COMPRIM? ? LIB?RATION PROLONG?E [Concomitant]
     Dosage: 1 DF
     Route: 048
  3. SIFROL 0,26 MG, COMPRIM? ? LIB?RATION PROLONG?E [Concomitant]
     Dosage: 1 DF
     Route: 048
  4. AZILECT [Concomitant]
     Active Substance: RASAGILINE MESYLATE
     Dosage: 1 DF
     Route: 048
  5. MODOPAR 125 (100 MG/25 MG), G?LULE [Concomitant]
     Active Substance: BENSERAZIDE HYDROCHLORIDE\LEVODOPA
     Dosage: 2 DF; 125 (100 MG / 25 MG)
     Route: 048

REACTIONS (1)
  - Colitis ischaemic [Recovered/Resolved]

NARRATIVE: CASE EVENT DATE: 20190925
